FAERS Safety Report 6613992-7 (Version None)
Quarter: 2010Q1

REPORT INFORMATION
  Report Type: 
  Country: None (occurrence: None)
  Receive Date: 20100304
  Receipt Date: 20100225
  Transmission Date: 20100710
  Serious: Yes (Hospitalization)
  Sender: FDA-Public Use
  Company Number: US-KINGPHARMUSA00001-K201000218

PATIENT
  Sex: Female
  Weight: 53.515 kg

DRUGS (5)
  1. FLECTOR [Suspect]
     Indication: PAIN IN EXTREMITY
     Dosage: 1/2 PATCH, EVERY 12 HOURS PRN
     Route: 061
     Dates: start: 20090101
  2. FLECTOR [Suspect]
     Indication: MUSCULOSKELETAL PAIN
  3. FLECTOR [Suspect]
     Indication: BACK PAIN
  4. NEURONTIN [Concomitant]
     Indication: PARAESTHESIA
     Dosage: 100-200 MG, QD
  5. DILTIAZEM HCL [Concomitant]
     Indication: BLOOD PRESSURE ABNORMAL
     Dosage: 120 MG, QD

REACTIONS (1)
  - MYOCARDIAL INFARCTION [None]
